FAERS Safety Report 10484072 (Version 1)
Quarter: 2014Q3

REPORT INFORMATION
  Report Type: Spontaneous
  Country: US (occurrence: None)
  Receive Date: 20140923
  Receipt Date: 20140923
  Transmission Date: 20150326
  Serious: Yes (Other)
  Sender: FDA-Public Use
  Company Number: 2014SUN01785

PATIENT
  Age: 32 Year
  Sex: Female

DRUGS (1)
  1. DIVALPROEX SODIUM DELAYED RELEASE [Suspect]
     Active Substance: DIVALPROEX SODIUM

REACTIONS (3)
  - Vomiting [None]
  - Drug ineffective [None]
  - Bipolar disorder [None]
